FAERS Safety Report 20329808 (Version 3)
Quarter: 2022Q2

REPORT INFORMATION
  Report Type: Report from Study
  Country: US (occurrence: US)
  Receive Date: 20220112
  Receipt Date: 20220408
  Transmission Date: 20220721
  Serious: No
  Sender: FDA-Public Use
  Company Number: US-ACADIA PHARMACEUTICALS INC.-ACA-2021-PIM-004446

PATIENT
  Age: 74 Year
  Sex: Male
  Weight: 69 kg

DRUGS (7)
  1. NUPLAZID [Suspect]
     Active Substance: PIMAVANSERIN TARTRATE
     Indication: Parkinson^s disease psychosis
     Dosage: 34 MILLIGRAM, QD
     Route: 048
     Dates: start: 202112, end: 20220105
  2. NUPLAZID [Suspect]
     Active Substance: PIMAVANSERIN TARTRATE
     Indication: Hallucination
     Dosage: 34 MILLIGRAM, QD
     Route: 048
     Dates: start: 202201
  3. NUPLAZID [Suspect]
     Active Substance: PIMAVANSERIN TARTRATE
     Indication: Delusion
  4. MEMANTINE [Suspect]
     Active Substance: MEMANTINE
     Dosage: UNK
  5. MELATONIN [Concomitant]
     Active Substance: MELATONIN
  6. VALSARTAN [Concomitant]
     Active Substance: VALSARTAN
  7. PROCARDIA [Concomitant]
     Active Substance: NIFEDIPINE

REACTIONS (10)
  - Product dose omission issue [Recovered/Resolved]
  - Depression [Unknown]
  - General physical health deterioration [Unknown]
  - Product dose omission issue [Unknown]
  - Nervousness [Not Recovered/Not Resolved]
  - Blood pressure increased [Not Recovered/Not Resolved]
  - Agitation [Unknown]
  - Hallucination [Recovering/Resolving]
  - Hallucination [Not Recovered/Not Resolved]
  - Confusional state [Not Recovered/Not Resolved]

NARRATIVE: CASE EVENT DATE: 20220101
